FAERS Safety Report 24841627 (Version 1)
Quarter: 2025Q1

REPORT INFORMATION
  Report Type: Spontaneous
  Country: CA (occurrence: CA)
  Receive Date: 20250114
  Receipt Date: 20250114
  Transmission Date: 20250408
  Serious: Yes (Hospitalization)
  Sender: PFIZER
  Company Number: CA-PFIZER INC-202500006480

PATIENT
  Age: 80 Year
  Sex: Male
  Weight: 73 kg

DRUGS (16)
  1. GEMCITABINE HYDROCHLORIDE [Suspect]
     Active Substance: GEMCITABINE HYDROCHLORIDE
     Indication: Pancreatic carcinoma
     Route: 042
  2. ABRAXANE [Suspect]
     Active Substance: PACLITAXEL
     Indication: Pancreatic carcinoma
     Route: 042
  3. ALFUZOSIN [Concomitant]
     Active Substance: ALFUZOSIN
  4. ATORVASTATIN [Concomitant]
     Active Substance: ATORVASTATIN
     Route: 065
  5. BLACK SEED OIL [Concomitant]
  6. CREON MINIMICROSPH [Concomitant]
  7. GARLIC [Concomitant]
     Active Substance: GARLIC
  8. HYDROMORPHONE [Concomitant]
     Active Substance: HYDROMORPHONE
  9. LOPERAMIDE [Concomitant]
     Active Substance: LOPERAMIDE
  10. ONDANSETRON [Concomitant]
     Active Substance: ONDANSETRON
  11. PANTOPRAZOLE [Concomitant]
     Active Substance: PANTOPRAZOLE
  12. PREGABALIN [Concomitant]
     Active Substance: PREGABALIN
  13. PROCHLORPERAZINE [Concomitant]
     Active Substance: PROCHLORPERAZINE
  14. TETRACYCLINE [Concomitant]
     Active Substance: TETRACYCLINE
  15. CYANOCOBALAMIN [Concomitant]
     Active Substance: CYANOCOBALAMIN
  16. VITAMIN D3 [Concomitant]
     Active Substance: CHOLECALCIFEROL

REACTIONS (3)
  - Febrile neutropenia [Recovered/Resolved]
  - Haemoglobin decreased [Recovered/Resolved]
  - Transfusion [Recovered/Resolved]
